FAERS Safety Report 6285053-0 (Version None)
Quarter: 2009Q3

REPORT INFORMATION
  Report Type: 
  Country: None (occurrence: None)
  Receive Date: 20090727
  Receipt Date: 20090714
  Transmission Date: 20100115
  Serious: Yes (Disabling)
  Sender: FDA-Public Use
  Company Number: IT-GENENTECH-287209

PATIENT
  Sex: Female

DRUGS (5)
  1. AVASTIN [Suspect]
     Indication: MACULAR DEGENERATION
     Dosage: 2.5 MG, UNK
     Route: 031
     Dates: start: 20070901, end: 20080507
  2. LANSOPRAZOLE [Concomitant]
     Indication: DRUG USE FOR UNKNOWN INDICATION
     Dosage: UNK
     Dates: start: 20070501, end: 20080906
  3. CANRENOATE POTASSIUM [Concomitant]
     Indication: DRUG USE FOR UNKNOWN INDICATION
     Dosage: UNK
     Dates: start: 20070501, end: 20080906
  4. PAROXETINE HCL [Concomitant]
     Indication: DRUG USE FOR UNKNOWN INDICATION
     Dosage: UNK
     Dates: start: 20070101, end: 20080901
  5. LUTEIN [Concomitant]
     Indication: DRUG USE FOR UNKNOWN INDICATION

REACTIONS (1)
  - NECROSIS ISCHAEMIC [None]
